FAERS Safety Report 14046612 (Version 1)
Quarter: 2017Q4

REPORT INFORMATION
  Report Type: Spontaneous
  Country: FR (occurrence: FR)
  Receive Date: 20171005
  Receipt Date: 20171005
  Transmission Date: 20180321
  Serious: Yes (Hospitalization)
  Sender: FDA-Public Use
  Company Number: FR-PFIZER INC-2017424833

PATIENT
  Age: 53 Year
  Sex: Female

DRUGS (9)
  1. AVASTIN [Suspect]
     Active Substance: BEVACIZUMAB
     Indication: ADENOCARCINOMA OF COLON
     Dosage: UNK UNK, CYCLIC
     Route: 042
     Dates: start: 201606, end: 201612
  2. CAMPTO [Suspect]
     Active Substance: IRINOTECAN
     Indication: ADENOCARCINOMA OF COLON
     Dosage: UNK UNK, CYCLIC
     Route: 042
     Dates: start: 201606, end: 201612
  3. XELODA [Suspect]
     Active Substance: CAPECITABINE
     Dosage: UNK UNK, CYCLIC
     Route: 042
     Dates: start: 201705
  4. AVASTIN [Suspect]
     Active Substance: BEVACIZUMAB
     Dosage: UNK UNK, CYCLIC
     Route: 042
     Dates: start: 201705
  5. SANDOSTATINE LP [Concomitant]
     Active Substance: OCTREOTIDE ACETATE
     Dosage: 1 DF, MONTHLY
     Route: 030
     Dates: start: 20170715
  6. CAMPTO [Suspect]
     Active Substance: IRINOTECAN
     Dosage: UNK UNK, CYCLIC
     Route: 042
     Dates: start: 201705
  7. XELODA [Suspect]
     Active Substance: CAPECITABINE
     Indication: ADENOCARCINOMA OF COLON
     Dosage: UNK UNK, CYCLIC
     Route: 042
     Dates: start: 201606, end: 201612
  8. SPASFON [Concomitant]
     Active Substance: PHLOROGLUCINOL\1,3,5-TRIMETHOXYBENZENE
     Dosage: 80 MG, AS NEEDED
  9. DUROGESIC [Concomitant]
     Active Substance: FENTANYL
     Dosage: 2 UG, EVERY 3 DAYS

REACTIONS (3)
  - Visual field tests abnormal [Recovering/Resolving]
  - Visual acuity reduced [Recovering/Resolving]
  - Retinal disorder [Unknown]

NARRATIVE: CASE EVENT DATE: 20170721
